FAERS Safety Report 6030917-6 (Version None)
Quarter: 2009Q1

REPORT INFORMATION
  Report Type: 
  Country: None (occurrence: None)
  Receive Date: 20090106
  Receipt Date: 20081222
  Transmission Date: 20090719
  Serious: Yes (Other)
  Sender: FDA-Public Use
  Company Number: SPV1-2008-02830

PATIENT

DRUGS (1)
  1. LIALDA [Suspect]

REACTIONS (1)
  - MULTIPLE SCLEROSIS [None]
